FAERS Safety Report 4440840-6 (Version None)
Quarter: 2004Q3

REPORT INFORMATION
  Report Type: 
  Country: None (occurrence: None)
  Receive Date: 20040903
  Receipt Date: 20040823
  Transmission Date: 20050211
  Serious: Yes (Hospitalization)
  Sender: FDA-Public Use
  Company Number: FR-GLAXOSMITHKLINE-B0343362A

PATIENT
  Age: 72 Year
  Sex: Female
  Weight: 60 kg

DRUGS (4)
  1. ZEFFIX [Suspect]
     Dosage: 100MG PER DAY
     Route: 048
  2. NOROXIN [Suspect]
     Indication: URINARY TRACT INFECTION
     Dosage: 400MG TWICE PER DAY
     Route: 048
     Dates: start: 20040712, end: 20040717
  3. CO-RENITEC [Suspect]
     Dosage: 1UNIT PER DAY
     Route: 048
  4. AVLOCARDYL [Suspect]
     Dosage: 160MG PER DAY
     Route: 048

REACTIONS (16)
  - ANOREXIA [None]
  - ASTERIXIS [None]
  - BLOOD BILIRUBIN INCREASED [None]
  - COGWHEEL RIGIDITY [None]
  - CONFUSIONAL STATE [None]
  - DEHYDRATION [None]
  - FOETOR HEPATICUS [None]
  - HYPERTHERMIA [None]
  - HYPERTONIA [None]
  - HYPOKINESIA [None]
  - IMPAIRED SELF-CARE [None]
  - JAUNDICE [None]
  - MICTURITION URGENCY [None]
  - NAUSEA [None]
  - NECK PAIN [None]
  - SOMNOLENCE [None]
